FAERS Safety Report 16750175 (Version 1)
Quarter: 2019Q3

REPORT INFORMATION
  Report Type: Spontaneous
  Country: US (occurrence: US)
  Receive Date: 20190828
  Receipt Date: 20190828
  Transmission Date: 20191005
  Serious: No
  Sender: FDA-Public Use
  Company Number: US-PFIZER INC-2019362239

PATIENT
  Age: 40 Year
  Sex: Female
  Weight: 105.23 kg

DRUGS (2)
  1. VANCOMYCIN HCL [Suspect]
     Active Substance: VANCOMYCIN HYDROCHLORIDE
     Dosage: 1.5 G, UNK(1.5 EVERY 18 HOURS)
     Route: 042
     Dates: start: 20190818
  2. VANCOMYCIN HCL [Suspect]
     Active Substance: VANCOMYCIN HYDROCHLORIDE
     Indication: POST PROCEDURAL INFECTION
     Dosage: 1.5 G, 2X/DAY(1.5 GRAMS EVERY 12 HOURS IV )
     Route: 042
     Dates: start: 20190816

REACTIONS (1)
  - White blood cell count increased [Not Recovered/Not Resolved]

NARRATIVE: CASE EVENT DATE: 20190821
